FAERS Safety Report 25761882 (Version 1)
Quarter: 2025Q3

REPORT INFORMATION
  Report Type: Spontaneous
  Country: US (occurrence: US)
  Receive Date: 20250904
  Receipt Date: 20250904
  Transmission Date: 20251020
  Serious: No
  Sender: PFIZER
  Company Number: US-PFIZER INC-PV202500106551

PATIENT
  Age: 30 Year
  Sex: Male
  Weight: 99.8 kg

DRUGS (11)
  1. NIFEDIPINE [Suspect]
     Active Substance: NIFEDIPINE
     Dates: start: 20250821
  2. CORTICOTROPIN [Suspect]
     Active Substance: CORTICOTROPIN
     Indication: Nephrotic syndrome
     Dosage: 80 DF, 2X/WEEK
     Route: 058
     Dates: start: 20250821
  3. MAGNESIUM [Concomitant]
     Active Substance: MAGNESIUM
     Indication: Nutritional supplementation
  4. POTASSIUM [Concomitant]
     Active Substance: POTASSIUM
  5. CALCIUM ACETATE [Concomitant]
     Active Substance: CALCIUM ACETATE
  6. CYCLOSPORINE [Concomitant]
     Active Substance: CYCLOSPORINE
  7. ATORVASTATIN [Concomitant]
     Active Substance: ATORVASTATIN
  8. LEVOTHYROXINE [Concomitant]
     Active Substance: LEVOTHYROXINE
  9. SODIUM BICARBONATE [Concomitant]
     Active Substance: SODIUM BICARBONATE
  10. VITAMIN D NOS [Concomitant]
     Active Substance: CHOLECALCIFEROL\ERGOCALCIFEROL
  11. BUMEX [Concomitant]
     Active Substance: BUMETANIDE

REACTIONS (9)
  - Peripheral swelling [Unknown]
  - Condition aggravated [Unknown]
  - Fluid retention [Unknown]
  - Blood pressure increased [Unknown]
  - Heart rate increased [Unknown]
  - Weight increased [Unknown]
  - Hypopnoea [Unknown]
  - Dyspnoea [Unknown]
  - Nocturia [Unknown]

NARRATIVE: CASE EVENT DATE: 20250801
